FAERS Safety Report 13242348 (Version 2)
Quarter: 2017Q3

REPORT INFORMATION
  Report Type: Spontaneous
  Country: US (occurrence: US)
  Receive Date: 20170216
  Receipt Date: 20170809
  Transmission Date: 20171127
  Serious: No
  Sender: FDA-Public Use
  Company Number: US-TEVA-735122ACC

PATIENT
  Age: 43 Year
  Sex: Female

DRUGS (32)
  1. PROPRANOLOL [Concomitant]
     Active Substance: PROPRANOLOL HYDROCHLORIDE
  2. LACTULOSE. [Concomitant]
     Active Substance: LACTULOSE
  3. MODAFINIL. [Concomitant]
     Active Substance: MODAFINIL
  4. CETIRIZINE [Concomitant]
     Active Substance: CETIRIZINE HYDROCHLORIDE
  5. HCTZ [Concomitant]
     Active Substance: HYDROCHLOROTHIAZIDE
  6. SUMATRIPTAN. [Concomitant]
     Active Substance: SUMATRIPTAN
  7. COUMADIN [Concomitant]
     Active Substance: WARFARIN SODIUM
  8. ONDANSETRON [Concomitant]
     Active Substance: ONDANSETRON
  9. DRYSOL [Concomitant]
     Active Substance: ALUMINUM CHLORIDE
  10. JOLIVETTE [Concomitant]
     Active Substance: NORETHINDRONE
  11. OXYCODONE [Concomitant]
     Active Substance: OXYCODONE
  12. PROTONIX [Concomitant]
     Active Substance: PANTOPRAZOLE SODIUM
  13. TRIAMTERENE/HYDROCHLOROTHIAZID [Concomitant]
  14. AMPHETAMINE/DEXTROAMPHETAMINE [Concomitant]
     Active Substance: AMPHETAMINE\DEXTROAMPHETAMINE
  15. POTTASSIUM CHLORIDE [Concomitant]
  16. ERYTHROMYCIN. [Concomitant]
     Active Substance: ERYTHROMYCIN
  17. METFORMIN [Concomitant]
     Active Substance: METFORMIN HYDROCHLORIDE
  18. AMITRIPTYLINE [Concomitant]
     Active Substance: AMITRIPTYLINE
  19. PANTOPRAZOLE [Concomitant]
     Active Substance: PANTOPRAZOLE
  20. CYNACOBALAMINE [Concomitant]
  21. BACLOFEN. [Concomitant]
     Active Substance: BACLOFEN
  22. VYVANSE [Concomitant]
     Active Substance: LISDEXAMFETAMINE DIMESYLATE
  23. FLUCONAZOLE. [Concomitant]
     Active Substance: FLUCONAZOLE
  24. GABAPENTIN. [Concomitant]
     Active Substance: GABAPENTIN
  25. LEXAPRO [Concomitant]
     Active Substance: ESCITALOPRAM OXALATE
  26. ESCITALOPRAM [Concomitant]
     Active Substance: ESCITALOPRAM OXALATE
  27. FLUTICASONE. [Concomitant]
     Active Substance: FLUTICASONE
  28. SPIRONOLACTONE. [Concomitant]
     Active Substance: SPIRONOLACTONE
  29. PREDNISONE. [Concomitant]
     Active Substance: PREDNISONE
  30. COPAXONE [Suspect]
     Active Substance: GLATIRAMER ACETATE
     Indication: MULTIPLE SCLEROSIS
     Dosage: PRE FILLED SYRINGE
     Route: 058
     Dates: start: 20150113
  31. CEPHALEXIN. [Concomitant]
     Active Substance: CEPHALEXIN
  32. AZITHROMYCIN ANHYDROUS. [Concomitant]
     Active Substance: AZITHROMYCIN ANHYDROUS

REACTIONS (3)
  - Nausea [Recovering/Resolving]
  - Fatigue [Not Recovered/Not Resolved]
  - Muscle spasms [Recovering/Resolving]

NARRATIVE: CASE EVENT DATE: 201705
